FAERS Safety Report 9297474 (Version 1)
Quarter: 2013Q2

REPORT INFORMATION
  Report Type: Spontaneous
  Country: US (occurrence: None)
  Receive Date: 20130517
  Receipt Date: 20130517
  Transmission Date: 20140414
  Serious: Yes (Life-Threatening, Hospitalization)
  Sender: FDA-Public Use
  Company Number: None

PATIENT
  Age: 51 Year
  Sex: Male
  Weight: 93 kg

DRUGS (3)
  1. EFFIENT [Suspect]
     Indication: CORONARY ARTERY DISEASE
     Dates: start: 20130319, end: 20130513
  2. EFFIENT [Suspect]
     Dates: start: 20130319, end: 20130513
  3. EFFIENT [Suspect]
     Dates: start: 20130319, end: 20130513

REACTIONS (1)
  - Cerebral haemorrhage [None]
